FAERS Safety Report 7822628 (Version 2)
Quarter: 2013Q1

REPORT INFORMATION
  Report Type: Spontaneous
  Country: US (occurrence: None)
  Receive Date: 20110119
  Receipt Date: 20130128
  Transmission Date: 20140127
  Serious: Yes (Hospitalization, Other)
  Sender: FDA-Public Use
  Company Number: JPI-P-013394

PATIENT
  Age: 62 Year
  Sex: Female
  Weight: 53.98 kg

DRUGS (2)
  1. XYREM [Suspect]
     Indication: SLEEP DISORDER
     Dosage: (UNKNOWN), ORAL
     Route: 048
     Dates: start: 200705
  2. UNSPECIFIED CONCOMITANT MEDICATION [Concomitant]

REACTIONS (4)
  - Fall [None]
  - Weight increased [None]
  - Sciatic nerve injury [None]
  - Intervertebral disc injury [None]
